FAERS Safety Report 7952894-0 (Version None)
Quarter: 2011Q4

REPORT INFORMATION
  Report Type: 
  Country: None (occurrence: None)
  Receive Date: 20111201
  Receipt Date: 20111125
  Transmission Date: 20120403
  Serious: Yes (Hospitalization)
  Sender: FDA-Public Use
  Company Number: FR-SANOFI-AVENTIS-2011SA077525

PATIENT
  Age: 86 Year
  Sex: Male

DRUGS (20)
  1. UMULINE [Concomitant]
     Route: 065
     Dates: start: 20110818, end: 20110912
  2. EQUANIL [Concomitant]
     Route: 048
     Dates: start: 20110910, end: 20110910
  3. ASPIRIN [Concomitant]
     Route: 048
     Dates: start: 20110907, end: 20110916
  4. FLAGYL [Concomitant]
  5. OFLOXACIN [Suspect]
     Route: 065
     Dates: start: 20110922, end: 20111004
  6. NEXIUM [Suspect]
     Route: 048
     Dates: start: 20110914, end: 20111001
  7. MORPHINE [Concomitant]
     Route: 042
     Dates: start: 20110818
  8. TARGOCID [Suspect]
     Route: 065
     Dates: start: 20110907, end: 20110915
  9. IMIPENEM AND CILASTATIN SODIUM [Suspect]
     Route: 042
     Dates: start: 20110922, end: 20111004
  10. CORDARONE [Suspect]
     Route: 048
     Dates: start: 20110830, end: 20110906
  11. TIAPRIDAL [Concomitant]
     Route: 048
     Dates: start: 20110921, end: 20110922
  12. DIPRIVAN [Concomitant]
  13. LOVENOX [Suspect]
     Route: 058
     Dates: start: 20110901, end: 20111001
  14. MOTILIUM [Suspect]
     Route: 048
     Dates: start: 20110906, end: 20110911
  15. PRAVASTATIN SODIUM [Suspect]
     Route: 048
     Dates: start: 20110906
  16. FLUCONAZOLE [Suspect]
     Route: 048
     Dates: start: 20110908, end: 20110914
  17. ACEBUTOLOL [Concomitant]
     Dates: start: 20110909
  18. SOLUDACTONE [Concomitant]
     Dates: start: 20110929, end: 20110930
  19. CLAFORAN [Suspect]
     Route: 042
     Dates: start: 20110906, end: 20110915
  20. OMEPRAZOLE [Concomitant]
     Route: 048
     Dates: start: 20110818, end: 20110910

REACTIONS (1)
  - STEVENS-JOHNSON SYNDROME [None]
